FAERS Safety Report 24693868 (Version 1)
Quarter: 2024Q4

REPORT INFORMATION
  Report Type: Spontaneous
  Country: US (occurrence: US)
  Receive Date: 20241204
  Receipt Date: 20241204
  Transmission Date: 20250114
  Serious: No
  Sender: AUROBINDO
  Company Number: US-AUROBINDO-AUR-APL-2023-079679

PATIENT
  Sex: Male

DRUGS (2)
  1. GUAIFENESIN [Suspect]
     Active Substance: GUAIFENESIN
     Indication: Pulmonary congestion
     Dosage: UNK UNK, (TWO TIMES A DAY)
     Route: 065
  2. GUAIFENESIN [Suspect]
     Active Substance: GUAIFENESIN
     Indication: Productive cough

REACTIONS (1)
  - Hypertension [Recovered/Resolved]
